FAERS Safety Report 17722186 (Version 1)
Quarter: 2020Q2

REPORT INFORMATION
  Report Type: Spontaneous
  Country: US (occurrence: US)
  Receive Date: 20200429
  Receipt Date: 20200429
  Transmission Date: 20200714
  Serious: No
  Sender: FDA-Public Use
  Company Number: US-BIOGEN-2016BI00256620

PATIENT
  Age: 61 Year
  Sex: Female

DRUGS (1)
  1. TYSABRI [Suspect]
     Active Substance: NATALIZUMAB
     Indication: MULTIPLE SCLEROSIS
     Route: 042
     Dates: start: 20100623, end: 20170227

REACTIONS (4)
  - Arthropathy [Recovered/Resolved with Sequelae]
  - Pain [Recovered/Resolved]
  - Nail psoriasis [Recovered/Resolved]
  - Limb mass [Recovered/Resolved]

NARRATIVE: CASE EVENT DATE: 20160505
